FAERS Safety Report 6163240-X (Version None)
Quarter: 2009Q2

REPORT INFORMATION
  Report Type: 
  Country: None (occurrence: None)
  Receive Date: 20090422
  Receipt Date: 20090211
  Transmission Date: 20091009
  Serious: No
  Sender: FDA-Public Use
  Company Number: US-BAYER-200914181NA

PATIENT
  Age: 57 Year
  Sex: Female

DRUGS (1)
  1. MAGNEVIST [Suspect]
     Indication: NUCLEAR MAGNETIC RESONANCE IMAGING
     Dosage: TOTAL DAILY DOSE: 11 ML  UNIT DOSE: 15 ML
     Route: 042
     Dates: start: 20090211, end: 20090211

REACTIONS (1)
  - RASH [None]
